FAERS Safety Report 24752201 (Version 2)
Quarter: 2025Q2

REPORT INFORMATION
  Report Type: Spontaneous
  Country: US (occurrence: US)
  Receive Date: 20241219
  Receipt Date: 20250530
  Transmission Date: 20250717
  Serious: Yes (Congenital Anomaly, Other)
  Sender: Kenvue
  Company Number: US-KENVUE-20241203275

PATIENT
  Sex: Female
  Weight: 2.986 kg

DRUGS (3)
  1. TYLENOL [Suspect]
     Active Substance: ACETAMINOPHEN
     Indication: Migraine
     Route: 064
  2. FIORICET [Suspect]
     Active Substance: ACETAMINOPHEN\BUTALBITAL\CAFFEINE
     Indication: Migraine
     Route: 064
     Dates: start: 202301
  3. ZOLOFT [Concomitant]
     Active Substance: SERTRALINE HYDROCHLORIDE
     Indication: Anxiety
     Dosage: 100 MILLIGRAM, ONCE A DAY
     Route: 064

REACTIONS (3)
  - Postnatal growth restriction [Recovering/Resolving]
  - Foetal exposure during pregnancy [Unknown]
  - Ocular albinism [Unknown]

NARRATIVE: CASE EVENT DATE: 20231222
